FAERS Safety Report 6627151-5 (Version None)
Quarter: 2010Q1

REPORT INFORMATION
  Report Type: 
  Country: None (occurrence: None)
  Receive Date: 20100308
  Receipt Date: 20100216
  Transmission Date: 20100710
  Serious: Yes (Hospitalization)
  Sender: FDA-Public Use
  Company Number: KV201000047

PATIENT
  Age: 45 Year
  Sex: Female
  Weight: 160 kg

DRUGS (2)
  1. MORPHINE SULFATE [Suspect]
     Indication: PAIN
     Dosage: 30 MG, Q8H, ORAL
     Route: 048
     Dates: start: 20080229
  2. SOMA [Concomitant]

REACTIONS (12)
  - ACUTE HEPATIC FAILURE [None]
  - COMA [None]
  - DIABETES MELLITUS [None]
  - DRUG TOXICITY [None]
  - DYSPNOEA [None]
  - HYPERKALAEMIA [None]
  - MULTI-ORGAN FAILURE [None]
  - OEDEMA PERIPHERAL [None]
  - OVERDOSE [None]
  - PNEUMONIA [None]
  - RENAL FAILURE [None]
  - UNRESPONSIVE TO STIMULI [None]
